FAERS Safety Report 10188639 (Version 1)
Quarter: 2014Q2

REPORT INFORMATION
  Report Type: Spontaneous
  Country: US (occurrence: US)
  Receive Date: 20140522
  Receipt Date: 20140522
  Transmission Date: 20141212
  Serious: No
  Sender: FDA-Public Use
  Company Number: US-SA-2014SA017497

PATIENT
  Age: 51 Year
  Sex: Female

DRUGS (3)
  1. SOLOSTAR [Suspect]
     Indication: TYPE 2 DIABETES MELLITUS
  2. LANTUS SOLOSTAR [Suspect]
     Indication: TYPE 2 DIABETES MELLITUS
     Dosage: PRODUCT START DATE -3 MONTHS DOSE:37 UNIT(S)
     Route: 051
  3. METFORMIN [Concomitant]

REACTIONS (4)
  - Nasopharyngitis [Unknown]
  - Blood glucose abnormal [Unknown]
  - Blood glucose increased [Unknown]
  - Blood glucose decreased [Unknown]
